FAERS Safety Report 6677618-9 (Version None)
Quarter: 2010Q2

REPORT INFORMATION
  Report Type: 
  Country: None (occurrence: None)
  Receive Date: 20100412
  Receipt Date: 20100317
  Transmission Date: 20101027
  Serious: No
  Sender: FDA-Public Use
  Company Number: US-ALEXION-A201000317

PATIENT
  Sex: Female

DRUGS (5)
  1. SOLIRIS [Suspect]
     Indication: PAROXYSMAL NOCTURNAL HAEMOGLOBINURIA
     Dosage: 600 MG, QW X 4
     Route: 042
     Dates: start: 20090824
  2. SOLIRIS [Suspect]
     Dosage: 900 MG, Q2W
     Route: 042
  3. HYPERCARE [Concomitant]
     Dosage: UNK
     Route: 061
     Dates: start: 20100101
  4. GLYCOPYRROLATE                     /00196202/ [Concomitant]
     Dosage: 1 MG, UNK
  5. COMPAZINE [Concomitant]
     Dosage: 10 MG, Q6H, PRN
     Route: 048

REACTIONS (1)
  - FATIGUE [None]
